FAERS Safety Report 22114251 (Version 1)
Quarter: 2023Q1

REPORT INFORMATION
  Report Type: Spontaneous
  Country: US (occurrence: None)
  Receive Date: 20230317
  Receipt Date: 20230317
  Transmission Date: 20230417
  Serious: Yes (Hospitalization)
  Sender: FDA-Public Use
  Company Number: None

PATIENT
  Age: 52 Year
  Sex: Male
  Weight: 68.5 kg

DRUGS (8)
  1. VICTOZA [Suspect]
     Active Substance: LIRAGLUTIDE
     Indication: Type 2 diabetes mellitus
     Dosage: FREQUENCY : DAILY;?
     Route: 058
     Dates: start: 20230303, end: 20230310
  2. METFORMIN [Concomitant]
     Active Substance: METFORMIN HYDROCHLORIDE
     Dates: start: 20180201, end: 20230310
  3. Humulin N NPH [Concomitant]
     Dates: start: 20191011
  4. HUMULIN R [Concomitant]
     Active Substance: INSULIN HUMAN
     Dates: start: 20220831, end: 20230303
  5. AMLODIPINE [Concomitant]
     Active Substance: AMLODIPINE BESYLATE
     Dates: start: 20180130
  6. ATORVASTATIN [Concomitant]
     Active Substance: ATORVASTATIN
     Dates: start: 20180201
  7. WARFARIN [Concomitant]
     Active Substance: WARFARIN
     Dates: start: 20111021
  8. GLIPIZIDE [Concomitant]
     Active Substance: GLIPIZIDE
     Dates: start: 20221223, end: 20230310

REACTIONS (8)
  - Thirst [None]
  - Fatigue [None]
  - Nausea [None]
  - Vomiting [None]
  - Abdominal pain [None]
  - Diabetic ketoacidosis [None]
  - Hypoglycaemia [None]
  - Dehydration [None]

NARRATIVE: CASE EVENT DATE: 20230310
